FAERS Safety Report 4990052-2 (Version None)
Quarter: 2006Q2

REPORT INFORMATION
  Report Type: 
  Country: None (occurrence: None)
  Receive Date: 20060427
  Receipt Date: 20060424
  Transmission Date: 20061013
  Serious: Yes (Hospitalization)
  Sender: FDA-Public Use
  Company Number: J081-002-002249

PATIENT
  Age: 70 Year
  Sex: Male

DRUGS (8)
  1. ARICEPT [Suspect]
     Indication: DEMENTIA ALZHEIMER'S TYPE
     Dosage: 5 MG, 1 IN 1 D, ORAL
     Route: 048
     Dates: start: 20051007, end: 20060413
  2. SYMMETREL [Concomitant]
  3. ADALAT [Concomitant]
  4. NEOPASTON (LEVODOPA/CARBIDOPA) [Concomitant]
  5. LASIX [Concomitant]
  6. GRAMALIL (TIAPRIDE HYDROCHLORIDE) [Concomitant]
  7. BUP-4 (PROPIVERINE HYDROCHLORIDE) [Concomitant]
  8. PURSENNID (SENNOSIDE) [Concomitant]

REACTIONS (1)
  - RHABDOMYOLYSIS [None]
